FAERS Safety Report 10368504 (Version 1)
Quarter: 2014Q3

REPORT INFORMATION
  Report Type: Spontaneous
  Country: US (occurrence: US)
  Receive Date: 20140807
  Receipt Date: 20140807
  Transmission Date: 20150326
  Serious: Yes (Hospitalization, Other)
  Sender: FDA-Public Use
  Company Number: US-B.I. PHARMACEUTICALS,INC./RIDGEFIELD-2014-BI-35799BP

PATIENT
  Sex: Female

DRUGS (7)
  1. MICARDIS HCT [Suspect]
     Active Substance: HYDROCHLOROTHIAZIDE\TELMISARTAN
     Indication: HYPERTENSION
     Dosage: DOSE PER APLLICATION: 40 MG / 12.5 MG; DAILY DOSE: 40 MG/12.5 MG
     Route: 048
     Dates: start: 2003, end: 201308
  2. LIPITOR [Concomitant]
     Active Substance: ATORVASTATIN CALCIUM
     Indication: BLOOD CHOLESTEROL INCREASED
     Dosage: 10 MG
     Route: 048
     Dates: start: 2012
  3. MICARDIS [Suspect]
     Active Substance: TELMISARTAN
     Indication: HYPERTENSION
     Dosage: 80 MG
     Route: 048
     Dates: start: 201308
  4. ENABLEX [Concomitant]
     Active Substance: DARIFENACIN\DARIFENACIN HYDROBROMIDE
     Indication: POLLAKIURIA
     Dosage: 7.5 MG
     Route: 048
     Dates: start: 2013
  5. MG CITRATE [Concomitant]
     Indication: MINERAL SUPPLEMENTATION
     Dosage: DOSE PER APPLICATION: 400 UNITS; DAILY DOSE: 400 UNITS
     Route: 048
     Dates: start: 2013
  6. GABAPENTIN. [Concomitant]
     Active Substance: GABAPENTIN
     Indication: NEUROPATHY PERIPHERAL
     Dosage: 1800 MG
     Route: 048
     Dates: start: 200807
  7. VITAMIN D [Concomitant]
     Active Substance: CHOLECALCIFEROL
     Indication: VITAMIN SUPPLEMENTATION
     Dosage: DOSE PER APLLICATION: 4000 UNITS; DAILY DOSE: 4000 UNITS
     Route: 048
     Dates: start: 2013

REACTIONS (10)
  - Cystitis [Recovered/Resolved]
  - Intervertebral disc degeneration [Recovered/Resolved]
  - Bradycardia [Not Recovered/Not Resolved]
  - Clostridium difficile infection [Recovered/Resolved]
  - Malignant melanoma [Recovered/Resolved]
  - Infection [Recovered/Resolved]
  - Osteoarthritis [Not Recovered/Not Resolved]
  - Renal failure [Recovered/Resolved]
  - Hydronephrosis [Recovered/Resolved]
  - Supraventricular tachycardia [Not Recovered/Not Resolved]

NARRATIVE: CASE EVENT DATE: 2005
